FAERS Safety Report 18042329 (Version 1)
Quarter: 2020Q3

REPORT INFORMATION
  Report Type: Spontaneous
  Country: US (occurrence: US)
  Receive Date: 20200716
  Receipt Date: 20200716
  Transmission Date: 20201103
  Serious: Yes (Other)
  Sender: FDA-Public Use
  Company Number: None

PATIENT
  Age: 76 Year
  Sex: Male
  Weight: 84 kg

DRUGS (1)
  1. LORAZEPAM (LORAZEPAM 0.5MG TAB) [Suspect]
     Active Substance: LORAZEPAM
     Route: 048
     Dates: start: 20190722, end: 20190722

REACTIONS (4)
  - Aggression [None]
  - Agitation [None]
  - Respiratory depression [None]
  - Respiratory distress [None]

NARRATIVE: CASE EVENT DATE: 20190818
